FAERS Safety Report 12518770 (Version 2)
Quarter: 2016Q4

REPORT INFORMATION
  Report Type: Spontaneous
  Country: US (occurrence: US)
  Receive Date: 20160630
  Receipt Date: 20161108
  Transmission Date: 20170207
  Serious: No
  Sender: FDA-Public Use
  Company Number: US-GLAXOSMITHKLINE-US2016GSK090523

PATIENT
  Age: 33 Year
  Sex: Male

DRUGS (1)
  1. ALBUTEROL. [Suspect]
     Active Substance: ALBUTEROL
     Indication: ASTHMA
     Dosage: UNK
     Dates: start: 1986

REACTIONS (3)
  - Asthma [Unknown]
  - Dyspnoea [Unknown]
  - Emergency care examination [Unknown]

NARRATIVE: CASE EVENT DATE: 20160409
